FAERS Safety Report 7651621-4 (Version None)
Quarter: 2011Q3

REPORT INFORMATION
  Report Type: 
  Country: None (occurrence: None)
  Receive Date: 20110802
  Receipt Date: 20110720
  Transmission Date: 20111222
  Serious: Yes (Hospitalization)
  Sender: FDA-Public Use
  Company Number: AU-MYLANLABS-2011S1015445

PATIENT
  Age: 49 Year
  Sex: Male

DRUGS (4)
  1. OLANZAPINE [Suspect]
     Indication: OVERDOSE
     Route: 065
  2. VENLAFAXINE [Suspect]
     Route: 065
  3. VALACICLOVIR [Suspect]
     Route: 065
  4. VALACICLOVIR [Suspect]
     Indication: OVERDOSE
     Dosage: 30G
     Route: 065

REACTIONS (3)
  - RENAL FAILURE ACUTE [None]
  - HYPOTENSION [None]
  - OVERDOSE [None]
